FAERS Safety Report 7087001-2 (Version None)
Quarter: 2010Q4

REPORT INFORMATION
  Report Type: 
  Country: None (occurrence: None)
  Receive Date: 20101106
  Receipt Date: 20101028
  Transmission Date: 20110411
  Serious: No
  Sender: FDA-Public Use
  Company Number: US-WYE-H17793910

PATIENT
  Age: 47 Year
  Sex: Female
  Weight: 52.66 kg

DRUGS (2)
  1. ADVIL MIGRAINE LIQUI-GELS [Suspect]
     Indication: MIGRAINE
     Dosage: 2 LIQUI-GELS AS NEEDED
     Route: 048
     Dates: end: 20100926
  2. MOTRIN [Suspect]
     Dosage: 2 TABLETS
     Route: 048

REACTIONS (2)
  - DRUG INEFFECTIVE [None]
  - INAPPROPRIATE SCHEDULE OF DRUG ADMINISTRATION [None]
